FAERS Safety Report 13351615 (Version 1)
Quarter: 2017Q1

REPORT INFORMATION
  Report Type: Spontaneous
  Country: US (occurrence: US)
  Receive Date: 20170320
  Receipt Date: 20170320
  Transmission Date: 20170429
  Serious: Yes (Other)
  Sender: FDA-Public Use
  Company Number: US-BAYER-2017-047978

PATIENT
  Age: 29 Year
  Sex: Female

DRUGS (1)
  1. MIRENA [Suspect]
     Active Substance: LEVONORGESTREL
     Dosage: 20 MCG/24HR, CONT
     Route: 015
     Dates: start: 20070316, end: 20100701

REACTIONS (6)
  - Benign intracranial hypertension [None]
  - Vomiting [None]
  - Tinnitus [None]
  - Vertigo [None]
  - Blindness [None]
  - Headache [None]

NARRATIVE: CASE EVENT DATE: 20090225
